FAERS Safety Report 10037346 (Version 1)
Quarter: 2014Q1

REPORT INFORMATION
  Report Type: Spontaneous
  Country: US (occurrence: None)
  Receive Date: 20140325
  Receipt Date: 20140325
  Transmission Date: 20141002
  Serious: No
  Sender: FDA-Public Use
  Company Number: None

PATIENT
  Age: 27 Year
  Sex: Female
  Weight: 63.5 kg

DRUGS (5)
  1. MIRVASO [Suspect]
     Indication: ROSACEA
     Dosage: 1 PEA-SIZED AMOUNT ONTO EACH OF THE 5 AREAS OF THE FACE ONCE IN MORNING
     Route: 061
     Dates: start: 20140304, end: 20140308
  2. BIRTH CONTROL (DAILY PILL) [Concomitant]
  3. RELPAX(AS NEEDED FOR MIGRAINES) [Concomitant]
  4. TREXIMET(AS NEEDED FOR MIGRAINES) [Concomitant]
  5. VITAMIN D [Concomitant]

REACTIONS (11)
  - Erythema [None]
  - Pallor [None]
  - Rash macular [None]
  - Urticaria [None]
  - Erythema [None]
  - Feeling hot [None]
  - Palpitations [None]
  - Sunburn [None]
  - Flushing [None]
  - Rosacea [None]
  - Condition aggravated [None]
